FAERS Safety Report 17908461 (Version 1)
Quarter: 2020Q2

REPORT INFORMATION
  Report Type: Spontaneous
  Country: US (occurrence: US)
  Receive Date: 20200617
  Receipt Date: 20200617
  Transmission Date: 20200714
  Serious: Yes (Death, Hospitalization, Other)
  Sender: FDA-Public Use
  Company Number: US-PURDUE-USA-2020-0154699

PATIENT
  Age: 52 Year
  Sex: Male

DRUGS (7)
  1. HYDROCODONE W/ACETAMINOPHEN [Suspect]
     Active Substance: ACETAMINOPHEN\HYDROCODONE BITARTRATE
     Indication: BACK INJURY
     Route: 048
  2. BUPRENORPHINE TRANSDERMAL PATCH (SIMILAR TO NDA 21-306) [Suspect]
     Active Substance: BUPRENORPHINE
     Indication: BACK INJURY
     Route: 062
  3. OXYCONTIN [Suspect]
     Active Substance: OXYCODONE HYDROCHLORIDE
     Indication: BACK INJURY
     Route: 048
  4. FENTANYL. [Suspect]
     Active Substance: FENTANYL
     Indication: BACK INJURY
     Route: 065
  5. OXYCODONE HCL CR TABLETS (SIMILAR TO NDA 22-272) [Suspect]
     Active Substance: OXYCODONE HYDROCHLORIDE
     Indication: BACK INJURY
     Route: 048
  6. TRAMADOL                           /00599202/ [Suspect]
     Active Substance: TRAMADOL
     Indication: BACK INJURY
     Route: 048
  7. OXYCODONE AND ACETAMINOPHEN [Suspect]
     Active Substance: ACETAMINOPHEN\OXYCODONE HYDROCHLORIDE
     Indication: BACK INJURY
     Route: 048

REACTIONS (7)
  - Seizure [Unknown]
  - Completed suicide [Fatal]
  - Drug dependence [Unknown]
  - Impaired work ability [Unknown]
  - Paraplegia [Unknown]
  - Toxicity to various agents [Fatal]
  - Spinal cord injury [Unknown]

NARRATIVE: CASE EVENT DATE: 20120329
